FAERS Safety Report 6600447-9 (Version None)
Quarter: 2010Q1

REPORT INFORMATION
  Report Type: 
  Country: None (occurrence: None)
  Receive Date: 20100224
  Receipt Date: 20100215
  Transmission Date: 20100710
  Serious: Yes (Hospitalization)
  Sender: FDA-Public Use
  Company Number: BE-ABBOTT-10P-013-0626234-00

PATIENT
  Sex: Female
  Weight: 88 kg

DRUGS (1)
  1. REDUCTIL [Suspect]
     Indication: DRUG USE FOR UNKNOWN INDICATION
     Route: 048
     Dates: start: 20080103, end: 20081026

REACTIONS (1)
  - MEDICAL DEVICE IMPLANTATION [None]
